FAERS Safety Report 10908762 (Version 1)
Quarter: 2015Q1

REPORT INFORMATION
  Report Type: Spontaneous
  Country: US (occurrence: None)
  Receive Date: 20150310
  Receipt Date: 20150310
  Transmission Date: 20150721
  Serious: No
  Sender: FDA-Public Use
  Company Number: None

PATIENT
  Age: 8 Year
  Sex: Male
  Weight: 50 kg

DRUGS (2)
  1. CLONDINE [Concomitant]
  2. DEXMETHYLPHENIDATE [Suspect]
     Active Substance: DEXMETHYLPHENIDATE HYDROCHLORIDE
     Indication: ATTENTION DEFICIT/HYPERACTIVITY DISORDER
     Dosage: 30 MG XR
     Route: 048
     Dates: start: 20150103, end: 20150114

REACTIONS (5)
  - Disturbance in attention [None]
  - Insomnia [None]
  - Anger [None]
  - Impulsive behaviour [None]
  - Aggression [None]

NARRATIVE: CASE EVENT DATE: 20150108
